FAERS Safety Report 9600072 (Version 1)
Quarter: 2013Q4

REPORT INFORMATION
  Report Type: Spontaneous
  Country: US (occurrence: US)
  Receive Date: 20131004
  Receipt Date: 20131004
  Transmission Date: 20140711
  Serious: No
  Sender: FDA-Public Use
  Company Number: US-AMGEN-USASP2013032104

PATIENT
  Age: 65 Year
  Sex: Female

DRUGS (13)
  1. ENBREL [Suspect]
     Indication: PRODUCT USED FOR UNKNOWN INDICATION
     Dosage: 50 MG, QWK
     Route: 058
  2. CELEBREX [Concomitant]
     Dosage: 100 MG, UNK
  3. METHOTREXATE [Concomitant]
     Dosage: 2.5 MG, UNK
  4. FOLIC ACID [Concomitant]
     Dosage: UNK
  5. CYMBALTA [Concomitant]
     Dosage: 20 MG, UNK
  6. TRAZODONE [Concomitant]
     Dosage: 50 MG, UNK
  7. ACYCLOVIR                          /00587301/ [Concomitant]
     Dosage: 200 MG, UNK
  8. IMITREX                            /01044801/ [Concomitant]
     Dosage: 25 MG, UNK
  9. ZOLPIDEM [Concomitant]
     Dosage: 10 MG, UNK
  10. METOPROLOL TARTRATE [Concomitant]
     Dosage: 100 MG, UNK
  11. PRILOSEC                           /00661201/ [Concomitant]
     Dosage: 10 MG, UNK
  12. VITAMIN B12                        /00056201/ [Concomitant]
     Dosage: 500 MUG, UNK
  13. MECLIZINE                          /00072801/ [Concomitant]
     Dosage: 12.5 MG, UNK

REACTIONS (1)
  - Dizziness [Unknown]
